FAERS Safety Report 9274387 (Version 2)
Quarter: 2013Q2

REPORT INFORMATION
  Report Type: Spontaneous
  Country: US (occurrence: US)
  Receive Date: 20130506
  Receipt Date: 20130619
  Transmission Date: 20140414
  Serious: No
  Sender: FDA-Public Use
  Company Number: US-BAYER-2013-052660

PATIENT
  Age: 54 Year
  Sex: Female

DRUGS (1)
  1. FINACEA [Suspect]
     Indication: ROSACEA
     Dosage: UNK
     Route: 061
     Dates: start: 20130408, end: 20130411

REACTIONS (4)
  - Hypersensitivity [None]
  - Dyspnoea [None]
  - Nausea [None]
  - Acne [None]
